FAERS Safety Report 18329967 (Version 1)
Quarter: 2020Q3

REPORT INFORMATION
  Report Type: Spontaneous
  Country: US (occurrence: US)
  Receive Date: 20200930
  Receipt Date: 20200930
  Transmission Date: 20201103
  Serious: No
  Sender: FDA-Public Use
  Company Number: US-SA-2020SA267506

PATIENT

DRUGS (2)
  1. NASACORT ALLERGY 24HR [Suspect]
     Active Substance: TRIAMCINOLONE ACETONIDE
     Indication: SINUS CONGESTION
     Dosage: UNK
     Dates: end: 20200928
  2. NA [Concomitant]
     Active Substance: SODIUM

REACTIONS (2)
  - Arthralgia [Recovered/Resolved]
  - Anxiety [Recovered/Resolved]
